FAERS Safety Report 8936356 (Version 1)
Quarter: 2012Q4

REPORT INFORMATION
  Report Type: Report from Study
  Country: US (occurrence: US)
  Receive Date: 20121130
  Receipt Date: 20121130
  Transmission Date: 20130627
  Serious: Yes (Death)
  Sender: FDA-Public Use
  Company Number: US-ROCHE-1070376

PATIENT
  Age: 78 None
  Sex: Male
  Weight: 75.36 kg

DRUGS (5)
  1. BEVACIZUMAB [Suspect]
     Indication: COLORECTAL CANCER METASTATIC
     Route: 042
     Dates: start: 20120330
  2. 5-FLUOROURACIL [Suspect]
     Indication: COLORECTAL CANCER METASTATIC
     Route: 042
     Dates: start: 201202
  3. METOPROLOL [Concomitant]
     Indication: BLOOD PRESSURE
     Route: 048
  4. PLAVIX [Concomitant]
     Indication: PERIPHERAL ARTERIAL OCCLUSIVE DISEASE
     Route: 048
  5. REGLAN [Concomitant]
     Indication: NAUSEA
     Route: 048

REACTIONS (9)
  - Sluggishness [Not Recovered/Not Resolved]
  - Epistaxis [Not Recovered/Not Resolved]
  - Fatigue [Not Recovered/Not Resolved]
  - Peripheral arterial occlusive disease [Not Recovered/Not Resolved]
  - Weight decreased [Not Recovered/Not Resolved]
  - Decreased appetite [Not Recovered/Not Resolved]
  - Catheter site haemorrhage [Recovering/Resolving]
  - Nausea [Not Recovered/Not Resolved]
  - Organ failure [Fatal]
